FAERS Safety Report 6982051-6 (Version None)
Quarter: 2010Q3

REPORT INFORMATION
  Report Type: 
  Country: None (occurrence: None)
  Receive Date: 20100914
  Receipt Date: 20091217
  Transmission Date: 20110219
  Serious: No
  Sender: FDA-Public Use
  Company Number: US-PFIZER INC-2009268801

PATIENT
  Sex: Female
  Weight: 76.7 kg

DRUGS (1)
  1. LYRICA [Suspect]
     Indication: CONVULSION
     Dosage: UNK
     Dates: start: 20090831

REACTIONS (1)
  - WEIGHT INCREASED [None]
